FAERS Safety Report 16589409 (Version 4)
Quarter: 2021Q4

REPORT INFORMATION
  Report Type: Spontaneous
  Country: US (occurrence: US)
  Receive Date: 20190718
  Receipt Date: 20211124
  Transmission Date: 20220303
  Serious: No
  Sender: FDA-Public Use
  Company Number: US-BIOGEN-2019BI00758590

PATIENT
  Age: 23 Year
  Sex: Female

DRUGS (4)
  1. AVONEX [Suspect]
     Active Substance: INTERFERON BETA-1A
     Indication: Multiple sclerosis
     Route: 030
     Dates: start: 20051101, end: 20070101
  2. AVONEX [Suspect]
     Active Substance: INTERFERON BETA-1A
  3. AVONEX [Suspect]
     Active Substance: INTERFERON BETA-1A
  4. AVONEX [Suspect]
     Active Substance: INTERFERON BETA-1A

REACTIONS (9)
  - Anxiety [Unknown]
  - Hemiparesis [Unknown]
  - Clumsiness [Unknown]
  - Gait disturbance [Unknown]
  - Temperature intolerance [Unknown]
  - Illness [Recovered/Resolved]
  - Hypoaesthesia [Unknown]
  - Influenza like illness [Recovered/Resolved]
  - Asthenia [Recovered/Resolved]

NARRATIVE: CASE EVENT DATE: 20051101
